FAERS Safety Report 18576914 (Version 1)
Quarter: 2020Q4

REPORT INFORMATION
  Report Type: Spontaneous
  Country: GB (occurrence: GB)
  Receive Date: 20201203
  Receipt Date: 20201203
  Transmission Date: 20210114
  Serious: Yes (Other)
  Sender: FDA-Public Use
  Company Number: GB-GILEAD-2020-0506753

PATIENT
  Age: 23 Year
  Sex: Female
  Weight: 53 kg

DRUGS (1)
  1. REMDESIVIR. [Suspect]
     Active Substance: REMDESIVIR
     Indication: PRODUCT USED FOR UNKNOWN INDICATION
     Route: 061
     Dates: start: 20201110

REACTIONS (8)
  - Chest discomfort [Recovered/Resolved]
  - Eye irritation [Unknown]
  - Migraine [Recovered/Resolved]
  - Lacrimation increased [Unknown]
  - Eye pain [Recovered/Resolved]
  - Feeling hot [Unknown]
  - Eye swelling [Unknown]
  - Accidental exposure to product [Unknown]
